FAERS Safety Report 9840438 (Version 1)
Quarter: 2013Q4

REPORT INFORMATION
  Report Type: Spontaneous
  Country: US (occurrence: None)
  Receive Date: 20131211
  Receipt Date: 20131211
  Transmission Date: 20140711
  Serious: Yes (Other)
  Sender: FDA-Public Use
  Company Number: TKT01200700073

PATIENT
  Age: 7 Year
  Sex: Male
  Weight: 25 kg

DRUGS (3)
  1. IDURSULFASE [Suspect]
     Indication: MUCOPOLYSACCHARIDOSIS II
     Dosage: UNK (12 MG, 1 IN 1 WK), INTRAVENOUS DRIP
     Route: 041
     Dates: start: 20060911
  2. SUDAFED (PSEUDOEPHEDRINE HYDROCHLORIDE) ? [Concomitant]
  3. ZYRTEC (CETIRIZINE HYDROCHLORIDE)? [Concomitant]

REACTIONS (6)
  - Erythema [None]
  - Purpura [None]
  - Blister [None]
  - Respiratory rate increased [None]
  - Feeling hot [None]
  - Infusion related reaction [None]
